FAERS Safety Report 8548291-X (Version None)
Quarter: 2012Q3

REPORT INFORMATION
  Report Type: 
  Country: None (occurrence: None)
  Receive Date: 20120730
  Receipt Date: 20120717
  Transmission Date: 20120928
  Serious: Yes (Other)
  Sender: FDA-Public Use
  Company Number: CA-JNJFOC-20111103210

PATIENT
  Sex: Female
  Weight: 52.6 kg

DRUGS (22)
  1. REMICADE [Suspect]
     Dosage: 76TH INFUSION
     Route: 042
     Dates: start: 20111216
  2. ATIVAN [Concomitant]
     Route: 065
  3. CALCIUM [Concomitant]
     Route: 065
  4. REMICADE [Suspect]
     Indication: JUVENILE ARTHRITIS
     Route: 042
     Dates: start: 20001007
  5. REMICADE [Suspect]
     Indication: RHEUMATOID ARTHRITIS
     Dosage: 76TH INFUSION
     Route: 042
     Dates: start: 20111216
  6. LEUCOVORIN CALCIUM [Concomitant]
     Indication: NUTRITIONAL SUPPORT
     Route: 065
     Dates: start: 20000101
  7. REMICADE [Suspect]
     Dosage: 76TH INFUSION
     Route: 042
     Dates: start: 20111216
  8. REMICADE [Suspect]
     Indication: UVEITIS
     Route: 042
     Dates: start: 20001007
  9. REMICADE [Suspect]
     Dosage: 76TH INFUSION
     Route: 042
     Dates: start: 20111216
  10. REMICADE [Suspect]
     Route: 042
     Dates: start: 20001007
  11. PREDNISONE [Concomitant]
     Route: 048
     Dates: start: 19800101
  12. CALCIUM [Concomitant]
     Route: 065
  13. LORAZEPAM [Concomitant]
     Route: 065
  14. VITAMIN D [Concomitant]
     Route: 065
  15. REMICADE [Suspect]
     Indication: PSORIASIS
     Route: 042
     Dates: start: 20001007
  16. ADVIL [Concomitant]
     Indication: PAIN
     Route: 048
     Dates: start: 20020101
  17. VITAMIN D [Concomitant]
     Route: 065
  18. PREDNISONE [Concomitant]
     Indication: JUVENILE ARTHRITIS
     Route: 048
  19. EVISTA [Concomitant]
     Indication: OSTEOPOROSIS
     Route: 065
     Dates: start: 20030101
  20. METHOTREXATE [Concomitant]
     Indication: JUVENILE ARTHRITIS
     Route: 058
     Dates: start: 20000101
  21. METHOTREXATE [Concomitant]
     Route: 058
  22. DESIPRAMINE [Concomitant]
     Indication: DEPRESSION
     Route: 048
     Dates: start: 19880101

REACTIONS (7)
  - PSORIASIS [None]
  - ERYSIPELAS [None]
  - HUMERUS FRACTURE [None]
  - STAPHYLOCOCCAL INFECTION [None]
  - FALL [None]
  - SKIN ULCER [None]
  - GLAUCOMA [None]
